FAERS Safety Report 7591892-6 (Version None)
Quarter: 2011Q2

REPORT INFORMATION
  Report Type: 
  Country: None (occurrence: None)
  Receive Date: 20110627
  Receipt Date: 20110614
  Transmission Date: 20111010
  Serious: Yes (Hospitalization)
  Sender: FDA-Public Use
  Company Number: DSA_46973_2011

PATIENT
  Sex: Female

DRUGS (1)
  1. WELLBUTRIN XL [Suspect]
     Indication: DEPRESSION
     Dosage: (30 TABLETS, NOT THE PRESCRIBED AMOUNT), (150 MG QD ORAL)
     Route: 048

REACTIONS (3)
  - INTENTIONAL OVERDOSE [None]
  - MUSCLE CONTRACTIONS INVOLUNTARY [None]
  - SUICIDE ATTEMPT [None]
